FAERS Safety Report 5704812-3 (Version None)
Quarter: 2008Q2

REPORT INFORMATION
  Report Type: 
  Country: None (occurrence: None)
  Receive Date: 20080414
  Receipt Date: 20080404
  Transmission Date: 20081010
  Serious: Yes (Hospitalization)
  Sender: FDA-Public Use
  Company Number: CH-PFIZER INC-2008024535

PATIENT
  Age: 50 Year
  Sex: Male

DRUGS (17)
  1. PROSTIN VR SOLUTION, STERILE [Suspect]
     Indication: LIVER TRANSPLANT
     Dosage: FREQ:DAILY
     Dates: start: 20080206, end: 20080212
  2. SIMULECT [Suspect]
     Indication: PREOPERATIVE CARE
     Dates: start: 20080206, end: 20080206
  3. SIMULECT [Suspect]
     Indication: LIVER TRANSPLANT
     Dates: start: 20080210, end: 20080210
  4. HEPATECT [Suspect]
     Indication: LIVER TRANSPLANT
     Dates: start: 20080206, end: 20080212
  5. PROGRAF [Suspect]
     Indication: LIVER TRANSPLANT
     Route: 048
  6. CELLCEPT [Suspect]
     Indication: LIVER TRANSPLANT
     Route: 048
  7. ZEFFIX [Concomitant]
     Dosage: DAILY DOSE:100MG-FREQ:DAILY
     Route: 048
  8. MYCOSTATIN [Concomitant]
     Route: 048
  9. POLYMYCIN B SULFATE [Concomitant]
  10. NEOMYCIN [Concomitant]
  11. DAFALGAN [Concomitant]
     Route: 048
  12. HEPARIN [Concomitant]
     Dates: start: 20080206, end: 20080213
  13. NEXIUM [Concomitant]
     Dosage: DAILY DOSE:40MG
     Route: 048
  14. ADALAT [Concomitant]
     Route: 048
     Dates: start: 20080212, end: 20080212
  15. ALBUMIN (HUMAN) [Concomitant]
     Route: 042
  16. MORPHINE HCL ELIXIR [Concomitant]
  17. SOLU-MEDROL [Concomitant]
     Indication: LIVER TRANSPLANT
     Route: 042
     Dates: start: 20080206, end: 20080206

REACTIONS (2)
  - PYREXIA [None]
  - SYSTEMIC INFLAMMATORY RESPONSE SYNDROME [None]
